FAERS Safety Report 25761775 (Version 1)
Quarter: 2025Q3

REPORT INFORMATION
  Report Type: Spontaneous
  Country: EU (occurrence: None)
  Receive Date: 20250904
  Receipt Date: 20250904
  Transmission Date: 20251021
  Serious: Yes (Other)
  Sender: ETHYPHARM
  Company Number: None

PATIENT
  Age: 51 Year
  Sex: Female

DRUGS (4)
  1. CANNABIS SATIVA SUBSP. INDICA TOP [Suspect]
     Active Substance: CANNABIS SATIVA SUBSP. INDICA TOP
  2. COCAINE [Suspect]
     Active Substance: COCAINE
  3. BUPRENORPHINE [Suspect]
     Active Substance: BUPRENORPHINE
  4. DIAZEPAM [Suspect]
     Active Substance: DIAZEPAM

REACTIONS (4)
  - Substance use disorder [Unknown]
  - Drug use disorder [Unknown]
  - Delirium [Unknown]
  - Paranoia [Unknown]

NARRATIVE: CASE EVENT DATE: 20250330
